FAERS Safety Report 8017102-3 (Version None)
Quarter: 2012Q1

REPORT INFORMATION
  Report Type: 
  Country: None (occurrence: None)
  Receive Date: 20120102
  Receipt Date: 20111229
  Transmission Date: 20120608
  Serious: Yes (Death, Other)
  Sender: FDA-Public Use
  Company Number: GB-ROCHE-1009701

PATIENT
  Sex: Female
  Weight: 46.444 kg

DRUGS (15)
  1. MULTI-VITAMINS [Concomitant]
     Dates: start: 20111025
  2. FORTICREME [Concomitant]
     Dates: start: 20111027
  3. PROCAL [Concomitant]
     Dates: start: 20100119
  4. CALCICHEW D3 [Concomitant]
     Dates: start: 20090202
  5. LUCENTIS [Suspect]
     Indication: PRODUCT USED FOR UNKNOWN INDICATION
     Route: 050
  6. FUROSEMIDE [Concomitant]
     Dates: start: 20090706
  7. DEXAMETHASONE [Concomitant]
     Dates: start: 20110217
  8. FORTISIP [Concomitant]
     Dates: start: 20111027
  9. BISOPROLOL FUMARATE [Concomitant]
     Dates: start: 20111025
  10. LACRI-LUBE [Concomitant]
     Dates: start: 20110117
  11. WARFARIN SODIUM [Concomitant]
     Dates: start: 20080701
  12. TOBRAMYCIN [Concomitant]
  13. AMOXICILLIN [Concomitant]
     Dates: start: 20111025
  14. RAMIPRIL [Concomitant]
     Dates: start: 20111025
  15. FERROUS FUMARATE [Concomitant]
     Dates: start: 20080702

REACTIONS (3)
  - INTERNATIONAL NORMALISED RATIO INCREASED [None]
  - LOWER RESPIRATORY TRACT INFECTION [None]
  - CARDIAC FAILURE [None]
